FAERS Safety Report 4784431-6 (Version None)
Quarter: 2005Q3

REPORT INFORMATION
  Report Type: 
  Country: None (occurrence: None)
  Receive Date: 20050929
  Receipt Date: 20050929
  Transmission Date: 20060218
  Serious: No
  Sender: FDA-Public Use
  Company Number: None

PATIENT
  Age: 72 Year
  Sex: Male
  Weight: 94 kg

DRUGS (1)
  1. ERYTHROMYCIN [Suspect]
     Indication: GASTRIC HYPOMOTILITY
     Dosage: 400 MG BID PO
     Route: 048
     Dates: start: 20050815, end: 20050926

REACTIONS (1)
  - ARRHYTHMIA [None]
